FAERS Safety Report 9348112 (Version 1)
Quarter: 2013Q2

REPORT INFORMATION
  Report Type: Spontaneous
  Country: HK (occurrence: HK)
  Receive Date: 20130614
  Receipt Date: 20130614
  Transmission Date: 20140414
  Serious: Yes (Death, Other)
  Sender: FDA-Public Use
  Company Number: HK-JNJFOC-20130602750

PATIENT
  Age: 38 Year
  Sex: Male

DRUGS (4)
  1. ITRACONAZOLE [Suspect]
     Indication: ANTIFUNGAL PROPHYLAXIS
     Route: 048
  2. VORICONAZOLE [Suspect]
     Indication: ZYGOMYCOSIS
     Route: 065
  3. MICAFUNGIN [Suspect]
     Indication: ZYGOMYCOSIS
     Route: 065
  4. CASPOFUNGIN [Suspect]
     Indication: ZYGOMYCOSIS
     Route: 065

REACTIONS (3)
  - Zygomycosis [Fatal]
  - Zygomycosis [Unknown]
  - Treatment failure [Unknown]
